FAERS Safety Report 9396126 (Version 1)
Quarter: 2013Q3

REPORT INFORMATION
  Report Type: Spontaneous
  Country: US (occurrence: US)
  Receive Date: 20130711
  Receipt Date: 20130711
  Transmission Date: 20140515
  Serious: No
  Sender: FDA-Public Use
  Company Number: US-TEVA-416011USA

PATIENT
  Age: 32 Year
  Sex: Female
  Weight: 49.03 kg

DRUGS (2)
  1. PARAGARD 380A [Suspect]
     Indication: CONTRACEPTION
     Dates: start: 20130522, end: 20130627
  2. CHEMOTHERAPEUTICS NOS [Concomitant]
     Indication: BREAST CANCER

REACTIONS (3)
  - Pelvic pain [Unknown]
  - Dyspareunia [Unknown]
  - Device expulsion [Recovered/Resolved]
